FAERS Safety Report 9220877 (Version 4)
Quarter: 2013Q4

REPORT INFORMATION
  Report Type: Spontaneous
  Country: US (occurrence: US)
  Receive Date: 20130409
  Receipt Date: 20131031
  Transmission Date: 20140711
  Serious: Yes (Death, Hospitalization, Other)
  Sender: FDA-Public Use
  Company Number: US-009507513-1304USA003377

PATIENT
  Sex: Female
  Weight: 76.64 kg

DRUGS (2)
  1. NUVARING [Suspect]
     Indication: CONTRACEPTION
     Dosage: INTRAVAGINALLY 3 WEEKS AND REMOVE 1 WEEK
     Route: 067
     Dates: start: 20060303, end: 20110707
  2. GONADOTROPIN, CHORIONIC [Concomitant]
     Indication: WEIGHT DECREASED

REACTIONS (10)
  - Acute respiratory failure [Unknown]
  - Pulmonary embolism [Fatal]
  - Shock [Unknown]
  - Endotracheal intubation [Unknown]
  - Supraventricular tachycardia [Unknown]
  - Acidosis [Unknown]
  - Pulseless electrical activity [Unknown]
  - Cardiac arrest [Unknown]
  - Haemoglobin decreased [Unknown]
  - Transfusion [Unknown]
